FAERS Safety Report 8887423 (Version 1)
Quarter: 2012Q4

REPORT INFORMATION
  Report Type: Spontaneous
  Country: US (occurrence: None)
  Receive Date: 20121101
  Receipt Date: 20121101
  Transmission Date: 20130627
  Serious: Yes (Hospitalization)
  Sender: FDA-Public Use
  Company Number: None

PATIENT
  Age: 92 Year
  Sex: Female
  Weight: 53.3 kg

DRUGS (12)
  1. ASA [Suspect]
     Indication: STROKE
     Dosage: chronic
     Route: 048
  2. PLAVIX [Suspect]
     Indication: STROKE
     Dosage: chronic
     Route: 048
  3. ZOCOR [Concomitant]
  4. LOTREL [Concomitant]
  5. MEGACE [Concomitant]
  6. METOPROLOL [Concomitant]
  7. GLIMEPIRIDE [Concomitant]
  8. MVI [Concomitant]
  9. CA VITD [Concomitant]
  10. VIT C [Concomitant]
  11. COD LIVER OIL [Concomitant]
  12. ZINC [Concomitant]

REACTIONS (7)
  - Rectal haemorrhage [None]
  - Anxiety [None]
  - Atrial fibrillation [None]
  - Gastroenteritis radiation [None]
  - Haemorrhoidal haemorrhage [None]
  - Diverticulum intestinal haemorrhagic [None]
  - Blood magnesium decreased [None]
